FAERS Safety Report 5823826-6 (Version None)
Quarter: 2008Q3

REPORT INFORMATION
  Report Type: 
  Country: None (occurrence: None)
  Receive Date: 20080725
  Receipt Date: 20080717
  Transmission Date: 20090109
  Serious: Yes (Other)
  Sender: FDA-Public Use
  Company Number: ES-PFIZER INC-2008060415

PATIENT
  Age: 49 Year
  Sex: Female

DRUGS (7)
  1. IRINOTECAN HCL [Suspect]
     Indication: COLORECTAL CANCER
     Route: 042
  2. GRANISETRON HCL [Concomitant]
     Indication: PREMEDICATION
     Route: 042
  3. PREDNISONE TAB [Concomitant]
     Dosage: TEXT:20MG IN THE MORNING AND 10MG AT NIGHT
     Route: 048
  4. DICLOFENAC SODIUM [Concomitant]
     Route: 048
  5. METAMIZOLE [Concomitant]
     Route: 048
  6. FAMOTIDINE [Concomitant]
     Route: 048
  7. TRAMADOL HCL [Concomitant]
     Route: 030

REACTIONS (1)
  - DYSARTHRIA [None]
